FAERS Safety Report 6879865-X (Version None)
Quarter: 2010Q2

REPORT INFORMATION
  Report Type: 
  Country: None (occurrence: None)
  Receive Date: 20100625
  Receipt Date: 20100430
  Transmission Date: 20101027
  Serious: Yes (Life-Threatening)
  Sender: FDA-Public Use
  Company Number: 570824

PATIENT
  Sex: Male

DRUGS (1)
  1. DEXTROSE 50% IN PLASTIC CONTAINER [Suspect]
     Indication: BLOOD GLUCOSE DECREASED
     Dosage: ONE AMP, ONCE, INTRAVENOUS
     Route: 042
     Dates: start: 20100101, end: 20100101

REACTIONS (1)
  - DEVICE FAILURE [None]
